FAERS Safety Report 7167041-5 (Version None)
Quarter: 2010Q4

REPORT INFORMATION
  Report Type: 
  Country: None (occurrence: None)
  Receive Date: 20101213
  Receipt Date: 20101213
  Transmission Date: 20110411
  Serious: No
  Sender: FDA-Public Use
  Company Number: None

PATIENT
  Age: 29 Year
  Sex: Female

DRUGS (1)
  1. IOHEXOL UNKNOWN UNKNOWN [Suspect]
     Indication: COMPUTERISED TOMOGRAM
     Dosage: 85 ML ONCE UNK
     Dates: start: 20101108, end: 20101108

REACTIONS (2)
  - COUGH [None]
  - DYSPNOEA [None]
